FAERS Safety Report 18923102 (Version 1)
Quarter: 2021Q1

REPORT INFORMATION
  Report Type: Report from Study
  Country: None (occurrence: US)
  Receive Date: 20210222
  Receipt Date: 20210222
  Transmission Date: 20210420
  Serious: Yes (Hospitalization)
  Sender: FDA-Public Use
  Company Number: US-ABBVIE-21K-163-3778153-00

PATIENT
  Sex: Male

DRUGS (1)
  1. HUMIRA [Suspect]
     Active Substance: ADALIMUMAB
     Indication: PSORIATIC ARTHROPATHY
     Route: 058
     Dates: start: 20200501

REACTIONS (12)
  - Vertigo [Recovered/Resolved]
  - Fall [Unknown]
  - Tremor [Unknown]
  - Pain [Unknown]
  - SARS-CoV-2 test positive [Unknown]
  - Cerebral cyst [Unknown]
  - Gait disturbance [Not Recovered/Not Resolved]
  - Contusion [Unknown]
  - Bronchitis [Unknown]
  - Vertigo [Unknown]
  - Weight decreased [Unknown]
  - Discomfort [Unknown]

NARRATIVE: CASE EVENT DATE: 2021
